FAERS Safety Report 15482476 (Version 1)
Quarter: 2018Q4

REPORT INFORMATION
  Report Type: Spontaneous
  Country: US (occurrence: US)
  Receive Date: 20181010
  Receipt Date: 20181010
  Transmission Date: 20190205
  Serious: No
  Sender: FDA-Public Use
  Company Number: US-B.I. PHARMACEUTICALS,INC./RIDGEFIELD-2018-BI-048531

PATIENT
  Age: 67 Year
  Sex: Female

DRUGS (2)
  1. TESSALON [Concomitant]
     Active Substance: BENZONATATE
     Indication: PRODUCT USED FOR UNKNOWN INDICATION
     Route: 048
     Dates: start: 20180914
  2. COMBIVENT [Suspect]
     Active Substance: ALBUTEROL SULFATE\IPRATROPIUM BROMIDE
     Indication: COUGH
     Dosage: STRENGTH: 20 MCG / 100 MCG;   ADMINISTRATION CORRECT? YES ?ACTION(S) WITH PRODUCT: DOSE NOT CHANGED
     Route: 055
     Dates: start: 201808

REACTIONS (2)
  - Off label use [Unknown]
  - Cough [Not Recovered/Not Resolved]

NARRATIVE: CASE EVENT DATE: 201808
